FAERS Safety Report 17925157 (Version 2)
Quarter: 2020Q2

REPORT INFORMATION
  Report Type: Spontaneous
  Country: JP (occurrence: JP)
  Receive Date: 20200622
  Receipt Date: 20200630
  Transmission Date: 20200714
  Serious: Yes (Death, Hospitalization, Other)
  Sender: FDA-Public Use
  Company Number: JP-ELI_LILLY_AND_COMPANY-JP202006008664

PATIENT
  Age: 62 Year
  Sex: Male

DRUGS (2)
  1. OPSUMIT [Concomitant]
     Active Substance: MACITENTAN
     Indication: PRODUCT USED FOR UNKNOWN INDICATION
     Dosage: 10 MG, UNKNOWN
     Route: 065
     Dates: start: 20171011, end: 20200612
  2. ADCIRCA [Suspect]
     Active Substance: TADALAFIL
     Indication: SYSTEMIC SCLERODERMA
     Dosage: UNK, UNKNOWN
     Route: 048
     Dates: end: 20200612

REACTIONS (9)
  - Decreased appetite [Unknown]
  - General physical health deterioration [Unknown]
  - Cardiac dysfunction [Unknown]
  - Off label use [Unknown]
  - Arrhythmia [Recovering/Resolving]
  - Lymphoma [Unknown]
  - Seasonal allergy [Unknown]
  - Pulmonary arterial hypertension [Fatal]
  - Neoplasm [Unknown]

NARRATIVE: CASE EVENT DATE: 202006
